FAERS Safety Report 17660446 (Version 5)
Quarter: 2022Q1

REPORT INFORMATION
  Report Type: Spontaneous
  Country: US (occurrence: US)
  Receive Date: 20200413
  Receipt Date: 20220104
  Transmission Date: 20220424
  Serious: Yes (Other)
  Sender: FDA-Public Use
  Company Number: US-PFIZER INC-2020150316

PATIENT
  Age: 64 Year
  Sex: Female
  Weight: 124.74 kg

DRUGS (5)
  1. XELJANZ XR [Suspect]
     Active Substance: TOFACITINIB CITRATE
     Indication: Rheumatoid arthritis
     Dosage: 11 MG, DAILY
     Route: 048
  2. DITROPAN [Concomitant]
     Active Substance: OXYBUTYNIN CHLORIDE
     Indication: Urinary tract infection
     Dosage: UNK
  3. LOSARTAN [Concomitant]
     Active Substance: LOSARTAN
     Indication: Blood pressure measurement
     Dosage: UNK
  4. METOPROLOL [Concomitant]
     Active Substance: METOPROLOL
     Indication: Blood pressure measurement
     Dosage: 100 MG, 2X/DAY
  5. OXYBUTYNIN [Concomitant]
     Active Substance: OXYBUTYNIN
     Dosage: UNK

REACTIONS (8)
  - Urinary tract infection [Unknown]
  - Urinary incontinence [Not Recovered/Not Resolved]
  - Urine odour abnormal [Unknown]
  - Rheumatoid arthritis [Unknown]
  - Headache [Unknown]
  - Swelling [Unknown]
  - Lymphoedema [Unknown]
  - Ulcer [Unknown]

NARRATIVE: CASE EVENT DATE: 20191201
